FAERS Safety Report 9759568 (Version 1)
Quarter: 2013Q4

REPORT INFORMATION
  Report Type: Spontaneous
  Country: US (occurrence: US)
  Receive Date: 20131216
  Receipt Date: 20131216
  Transmission Date: 20140711
  Serious: No
  Sender: FDA-Public Use
  Company Number: US-GILEAD-2010-0028235

PATIENT
  Sex: Female

DRUGS (14)
  1. LETAIRIS [Suspect]
     Indication: PULMONARY ARTERIAL HYPERTENSION
     Route: 048
     Dates: start: 20100221, end: 20100303
  2. NITROGLYCERIN [Concomitant]
  3. PROVENTIL [Concomitant]
  4. FLOVENT [Concomitant]
  5. HUMALOG [Concomitant]
  6. LANTUS [Concomitant]
  7. BUMETANIDE [Concomitant]
  8. WARFARIN [Concomitant]
  9. COREG [Concomitant]
  10. ENALAPRIL [Concomitant]
  11. DIGOXIN [Concomitant]
  12. PLAVIX [Concomitant]
  13. SPIRONOLACTONE [Concomitant]
  14. LIPITOR [Concomitant]

REACTIONS (1)
  - Oedema peripheral [Recovered/Resolved]
